FAERS Safety Report 18160796 (Version 1)
Quarter: 2020Q3

REPORT INFORMATION
  Report Type: Spontaneous
  Country: US (occurrence: US)
  Receive Date: 20200818
  Receipt Date: 20200818
  Transmission Date: 20201103
  Serious: No
  Sender: FDA-Public Use
  Company Number: US-COLGATE PALMOLIVE COMPANY-20190701866

PATIENT
  Sex: Female

DRUGS (1)
  1. COLGATE TOTAL DAILY REPAIR [Suspect]
     Active Substance: SODIUM FLUORIDE\TRICLOSAN
     Dosage: UNKNOWN DOSE.
     Route: 048
     Dates: end: 20190710

REACTIONS (4)
  - Oral discomfort [Unknown]
  - Cheilitis [Unknown]
  - Lip pain [Unknown]
  - Hypoaesthesia oral [Unknown]
